FAERS Safety Report 7777378-4 (Version None)
Quarter: 2011Q3

REPORT INFORMATION
  Report Type: 
  Country: None (occurrence: None)
  Receive Date: 20110926
  Receipt Date: 20110921
  Transmission Date: 20111222
  Serious: Yes (Death, Hospitalization)
  Sender: FDA-Public Use
  Company Number: PHHY2011NI83994

PATIENT
  Age: 84 Year
  Sex: Male

DRUGS (3)
  1. DIOVAN HCT [Suspect]
     Indication: HYPERTENSION
     Dosage: 160 MG OF VALS AND 12.5 MG OF HYDRO PER DAY
     Route: 048
  2. LOVAZA [Concomitant]
  3. GINGKO BILOBA [Concomitant]

REACTIONS (8)
  - DEATH [None]
  - BREATH SOUNDS ABNORMAL [None]
  - URINARY RETENTION [None]
  - PULMONARY OEDEMA [None]
  - URINARY TRACT INFECTION [None]
  - HYPOKALAEMIA [None]
  - INFARCTION [None]
  - FATIGUE [None]
